FAERS Safety Report 23474929 (Version 1)
Quarter: 2024Q1

REPORT INFORMATION
  Report Type: Report from Study
  Country: US (occurrence: US)
  Receive Date: 20240204
  Receipt Date: 20240204
  Transmission Date: 20240409
  Serious: Yes (Hospitalization)
  Sender: FDA-Public Use
  Company Number: US-EXELIXIS-CABO-23069923

PATIENT
  Sex: Female

DRUGS (2)
  1. CABOMETYX [Suspect]
     Active Substance: CABOZANTINIB S-MALATE
     Indication: Renal cancer
     Dosage: 60 MG, QD
     Route: 048
     Dates: end: 20231107
  2. CABOMETYX [Suspect]
     Active Substance: CABOZANTINIB S-MALATE
     Dosage: 40 MG, QD
     Route: 048

REACTIONS (17)
  - Diarrhoea [Recovered/Resolved]
  - Dehydration [Unknown]
  - Eye swelling [Unknown]
  - Erythema [Unknown]
  - Drug intolerance [Unknown]
  - Fatigue [Not Recovered/Not Resolved]
  - Decreased appetite [Unknown]
  - Pruritus [Unknown]
  - Nausea [Unknown]
  - Joint swelling [Not Recovered/Not Resolved]
  - Nasal ulcer [Unknown]
  - Nasal congestion [Unknown]
  - Paranasal sinus discomfort [Unknown]
  - Peripheral swelling [Not Recovered/Not Resolved]
  - Eyelid margin crusting [Unknown]
  - Blood magnesium decreased [Unknown]
  - Blood potassium decreased [Unknown]
